FAERS Safety Report 6984834-5 (Version None)
Quarter: 2010Q3

REPORT INFORMATION
  Report Type: 
  Country: None (occurrence: None)
  Receive Date: 20100915
  Receipt Date: 20100906
  Transmission Date: 20110219
  Serious: Yes (Other)
  Sender: FDA-Public Use
  Company Number: FR-ASTRAZENECA-2010SE42267

PATIENT
  Age: 71 Year
  Sex: Male

DRUGS (4)
  1. CANDESARTAN CILEXETIL/HYDROCHLOROTHIAZIDE (ATACAND HCT) [Suspect]
     Indication: HYPERTENSION
     Dosage: 16/12.5 MG, 1 DF DAILY
     Route: 048
     Dates: end: 20100801
  2. LERCANIDIPINE [Concomitant]
     Indication: HYPERTENSION
     Route: 048
  3. PERMIXON [Concomitant]
     Route: 048
  4. KARDEGIC [Concomitant]
     Route: 048

REACTIONS (1)
  - TENDONITIS [None]
